FAERS Safety Report 9686396 (Version 1)
Quarter: 2013Q4

REPORT INFORMATION
  Report Type: Spontaneous
  Country: CA (occurrence: CA)
  Receive Date: 20131113
  Receipt Date: 20131113
  Transmission Date: 20140711
  Serious: Yes (Other)
  Sender: FDA-Public Use
  Company Number: CA-ASTRAZENECA-2013SE81347

PATIENT
  Age: 56 Year
  Sex: Female

DRUGS (3)
  1. NEXIUM [Suspect]
     Route: 048
  2. ESTROGENS [Concomitant]
  3. PROGESTERONE [Concomitant]

REACTIONS (3)
  - Ulcer [Not Recovered/Not Resolved]
  - Weight decreased [Not Recovered/Not Resolved]
  - Hepatitis [Not Recovered/Not Resolved]
